FAERS Safety Report 6863053-7 (Version None)
Quarter: 2010Q3

REPORT INFORMATION
  Report Type: 
  Country: None (occurrence: None)
  Receive Date: 20100721
  Receipt Date: 20100714
  Transmission Date: 20110219
  Serious: Yes (Other)
  Sender: FDA-Public Use
  Company Number: JP-MERCK-1007USA01907

PATIENT
  Age: 53 Year
  Sex: Female

DRUGS (1)
  1. PEPCID RPD [Suspect]
     Route: 048
     Dates: start: 20090601, end: 20090701

REACTIONS (1)
  - LIVER DISORDER [None]
